FAERS Safety Report 14260513 (Version 2)
Quarter: 2018Q1

REPORT INFORMATION
  Report Type: Report from Study
  Country: DE (occurrence: DE)
  Receive Date: 20171207
  Receipt Date: 20180101
  Transmission Date: 20180508
  Serious: Yes (Other)
  Sender: FDA-Public Use
  Company Number: PHHY2017DE178303

PATIENT
  Age: 77 Year
  Sex: Male

DRUGS (2)
  1. ACETYLSALICYLIC ACID [Concomitant]
     Active Substance: ASPIRIN
     Indication: PRODUCT USED FOR UNKNOWN INDICATION
     Dosage: UNK UNK, PRN
     Route: 065
  2. EXJADE [Suspect]
     Active Substance: DEFERASIROX
     Indication: MYELODYSPLASTIC SYNDROME
     Dosage: 2 DF, UNK
     Route: 065

REACTIONS (10)
  - Myalgia [Unknown]
  - Sleep disorder [Unknown]
  - Dyspnoea [Unknown]
  - Back pain [Unknown]
  - Bronchitis [Unknown]
  - Influenza [Unknown]
  - Infection susceptibility increased [Unknown]
  - Muscle spasms [Unknown]
  - Pruritus generalised [Recovering/Resolving]
  - Nasopharyngitis [Unknown]
